FAERS Safety Report 15644967 (Version 1)
Quarter: 2018Q4

REPORT INFORMATION
  Report Type: Spontaneous
  Country: FR (occurrence: FR)
  Receive Date: 20181121
  Receipt Date: 20181121
  Transmission Date: 20190205
  Serious: Yes (Hospitalization)
  Sender: FDA-Public Use
  Company Number: FR-TEVA-2018-FR-977088

PATIENT
  Age: 87 Year
  Sex: Male

DRUGS (1)
  1. AMOXICILLIN. [Suspect]
     Active Substance: AMOXICILLIN
     Indication: BACTERAEMIA
     Dosage: 10 GRAM DAILY;
     Route: 042
     Dates: start: 20170824, end: 20170828

REACTIONS (1)
  - Disturbance in attention [Recovered/Resolved]

NARRATIVE: CASE EVENT DATE: 20170825
